FAERS Safety Report 20084081 (Version 1)
Quarter: 2021Q4

REPORT INFORMATION
  Report Type: Spontaneous
  Country: ES (occurrence: None)
  Receive Date: 20211118
  Receipt Date: 20211118
  Transmission Date: 20220303
  Serious: Yes (Hospitalization, Other)
  Sender: FDA-Public Use
  Company Number: ES-Merck Healthcare KGaA-9266994

PATIENT
  Sex: Female

DRUGS (2)
  1. REBIF [Suspect]
     Active Substance: INTERFERON BETA-1A
     Indication: Demyelination
     Dosage: 44 (UNSPECIFIED UNITS)
     Route: 058
     Dates: start: 20110909, end: 20131110
  2. TOPIRAMATE [Concomitant]
     Active Substance: TOPIRAMATE
     Indication: Migraine prophylaxis
     Dosage: AT BREAKFAST AND DINNER

REACTIONS (4)
  - Autoimmune hypothyroidism [Unknown]
  - Autoimmune hepatitis [Recovered/Resolved]
  - Anxiety [Unknown]
  - Off label use [Unknown]
